FAERS Safety Report 7611396-1 (Version None)
Quarter: 2011Q3

REPORT INFORMATION
  Report Type: 
  Country: None (occurrence: None)
  Receive Date: 20110715
  Receipt Date: 20110708
  Transmission Date: 20111222
  Serious: Yes (Hospitalization)
  Sender: FDA-Public Use
  Company Number: CO-ROCHE-784024

PATIENT
  Sex: Female

DRUGS (1)
  1. MIRCERA [Suspect]
     Route: 058
     Dates: start: 20110316

REACTIONS (3)
  - DEHYDRATION [None]
  - ACUTE MYOCARDIAL INFARCTION [None]
  - VOMITING [None]
